FAERS Safety Report 16058366 (Version 5)
Quarter: 2019Q3

REPORT INFORMATION
  Report Type: Spontaneous
  Country: US (occurrence: US)
  Receive Date: 20190311
  Receipt Date: 20190924
  Transmission Date: 20191004
  Serious: Yes (Hospitalization, Other)
  Sender: FDA-Public Use
  Company Number: US-ASTRAZENECA-2018SF34203

PATIENT
  Age: 814 Month
  Sex: Male

DRUGS (30)
  1. PRILOSEC OTC [Suspect]
     Active Substance: OMEPRAZOLE MAGNESIUM
     Indication: GASTROOESOPHAGEAL REFLUX DISEASE
     Route: 048
     Dates: start: 20150301, end: 20170331
  2. DICLOFENAC [Concomitant]
     Active Substance: DICLOFENAC
  3. DEXAMETHASONE. [Concomitant]
     Active Substance: DEXAMETHASONE
     Dates: start: 20171214
  4. LACTULOSE. [Concomitant]
     Active Substance: LACTULOSE
     Dates: start: 20180317
  5. CHLORTALIDONE [Concomitant]
     Active Substance: CHLORTHALIDONE
     Indication: BLOOD PRESSURE ABNORMAL
     Dates: start: 20181104
  6. PRILOSEC OTC [Suspect]
     Active Substance: OMEPRAZOLE MAGNESIUM
     Indication: GASTROOESOPHAGEAL REFLUX DISEASE
     Route: 048
     Dates: start: 201503, end: 20170626
  7. AMLODIPINE BESYLATE. [Concomitant]
     Active Substance: AMLODIPINE BESYLATE
  8. GUAIFENESIN. [Concomitant]
     Active Substance: GUAIFENESIN
     Dates: start: 20170627
  9. ATIVAN [Concomitant]
     Active Substance: LORAZEPAM
     Dates: start: 20181102
  10. LORAZEPAM. [Concomitant]
     Active Substance: LORAZEPAM
     Indication: ANXIETY
     Dates: start: 20181105
  11. PRILOSEC OTC [Suspect]
     Active Substance: OMEPRAZOLE MAGNESIUM
     Indication: GASTROOESOPHAGEAL REFLUX DISEASE
     Route: 048
     Dates: start: 2010, end: 2018
  12. IBUPROFEN. [Concomitant]
     Active Substance: IBUPROFEN
     Dates: start: 20171214
  13. LISINOPRIL. [Concomitant]
     Active Substance: LISINOPRIL
     Dates: start: 20170825
  14. RANITIDINE. [Concomitant]
     Active Substance: RANITIDINE
  15. BUDESONIDE. [Concomitant]
     Active Substance: BUDESONIDE
     Indication: DYSPNOEA
     Dates: start: 20181104
  16. PRILOSEC OTC [Suspect]
     Active Substance: OMEPRAZOLE MAGNESIUM
     Indication: GASTROOESOPHAGEAL REFLUX DISEASE
     Route: 048
     Dates: start: 20150301, end: 20170331
  17. PRILOSEC OTC [Suspect]
     Active Substance: OMEPRAZOLE MAGNESIUM
     Indication: GASTROOESOPHAGEAL REFLUX DISEASE
     Route: 048
     Dates: start: 201503, end: 20170626
  18. OMEPRAZOLE. [Suspect]
     Active Substance: OMEPRAZOLE
     Indication: GASTROOESOPHAGEAL REFLUX DISEASE
     Dosage: 20 MG TWICE A DAILY; 20 MG DAILY
     Route: 065
     Dates: start: 20170627, end: 20181205
  19. HYDROCHLOROTHIAZIDE. [Concomitant]
     Active Substance: HYDROCHLOROTHIAZIDE
  20. KETOROLAC [Concomitant]
     Active Substance: KETOROLAC TROMETHAMINE
  21. LOSARTAN. [Concomitant]
     Active Substance: LOSARTAN
     Indication: BLOOD PRESSURE ABNORMAL
     Dates: start: 20180215
  22. PRILOSEC OTC [Suspect]
     Active Substance: OMEPRAZOLE MAGNESIUM
     Indication: GASTROOESOPHAGEAL REFLUX DISEASE
     Route: 048
     Dates: start: 2010, end: 2018
  23. METHOCARBAMOL. [Concomitant]
     Active Substance: METHOCARBAMOL
  24. CEFPODOXIME [Concomitant]
     Active Substance: CEFPODOXIME
     Dates: start: 20170627
  25. SUCRALFATE. [Concomitant]
     Active Substance: SUCRALFATE
  26. VALSARTAN. [Concomitant]
     Active Substance: VALSARTAN
     Dates: start: 20181104
  27. DIOVAN [Concomitant]
     Active Substance: VALSARTAN
     Indication: BLOOD PRESSURE ABNORMAL
     Dates: start: 20181104
  28. ALBUTEROL. [Concomitant]
     Active Substance: ALBUTEROL
     Indication: CHRONIC OBSTRUCTIVE PULMONARY DISEASE
     Dates: start: 20181104
  29. CLONIDINE. [Concomitant]
     Active Substance: CLONIDINE
     Indication: BLOOD PRESSURE ABNORMAL
     Dates: start: 20181104
  30. AMLODIPINE [Concomitant]
     Active Substance: AMLODIPINE BESYLATE
     Indication: BLOOD PRESSURE ABNORMAL
     Dates: start: 20181103

REACTIONS (2)
  - Chronic kidney disease [Not Recovered/Not Resolved]
  - Renal injury [Unknown]

NARRATIVE: CASE EVENT DATE: 201707
